FAERS Safety Report 4960862-6 (Version None)
Quarter: 2006Q2

REPORT INFORMATION
  Report Type: 
  Country: None (occurrence: None)
  Receive Date: 20060403
  Receipt Date: 20060301
  Transmission Date: 20061013
  Serious: Yes (Hospitalization)
  Sender: FDA-Public Use
  Company Number: PHHO2006JP03758

PATIENT
  Age: 82 Year
  Sex: Female
  Weight: 43 kg

DRUGS (2)
  1. DIOVAN [Suspect]
     Indication: HYPERTENSION
     Dosage: 80 MG, QD
     Route: 048
     Dates: start: 20021105
  2. NORVASC [Concomitant]
     Indication: HYPERTENSION
     Dosage: 5 MG/DAILY
     Route: 048
     Dates: start: 20021105

REACTIONS (5)
  - ANGINA UNSTABLE [None]
  - AORTIC VALVE STENOSIS [None]
  - CHEST PAIN [None]
  - CORONARY ANGIOPLASTY [None]
  - STENT PLACEMENT [None]
